FAERS Safety Report 10402444 (Version 1)
Quarter: 2014Q3

REPORT INFORMATION
  Report Type: Spontaneous
  Country: GB (occurrence: GB)
  Receive Date: 20140822
  Receipt Date: 20140822
  Transmission Date: 20150326
  Serious: Yes (Other)
  Sender: FDA-Public Use
  Company Number: GB-WATSON-2014-17918

PATIENT
  Age: 53 Year
  Sex: Male
  Weight: 133 kg

DRUGS (3)
  1. RAMIPRIL (UNKNOWN) [Suspect]
     Active Substance: RAMIPRIL
     Dosage: 5 MG, UNKNOWN
     Route: 048
     Dates: start: 20140310
  2. RAMIPRIL (UNKNOWN) [Suspect]
     Active Substance: RAMIPRIL
     Indication: MICROALBUMINURIA
     Dosage: 1.25 MG TITRATED UP TO 10 MG
     Route: 048
     Dates: start: 201308, end: 20140309
  3. FORXIGA [Suspect]
     Active Substance: DAPAGLIFLOZIN
     Indication: TYPE 2 DIABETES MELLITUS
     Dosage: 10 MG, DAILY
     Route: 048
     Dates: start: 20130828

REACTIONS (1)
  - Blood pressure decreased [Recovered/Resolved]

NARRATIVE: CASE EVENT DATE: 20140219
